FAERS Safety Report 10581905 (Version 1)
Quarter: 2014Q4

REPORT INFORMATION
  Report Type: Spontaneous
  Country: US (occurrence: US)
  Receive Date: 20141113
  Receipt Date: 20141113
  Transmission Date: 20150529
  Serious: No
  Sender: FDA-Public Use
  Company Number: US-PFIZER INC-2014311298

PATIENT
  Age: 63 Year
  Sex: Male
  Weight: 91 kg

DRUGS (6)
  1. LISINOPRIL. [Suspect]
     Active Substance: LISINOPRIL
     Indication: BLOOD PRESSURE ABNORMAL
     Dosage: 20 MG, 1X/DAY
     Route: 048
     Dates: start: 201406
  2. MELOXICAM. [Suspect]
     Active Substance: MELOXICAM
     Indication: ARTHRITIS
     Dosage: 15 MG, 1X/DAY
  3. AMLODIPINE [Concomitant]
     Active Substance: AMLODIPINE BESYLATE
  4. MICARDIS [Suspect]
     Active Substance: TELMISARTAN
     Indication: HYPERTENSION
     Dosage: 80 MG, 1X/DAY IN THE MORNING
     Dates: end: 20140901
  5. NEXIUM [Concomitant]
     Active Substance: ESOMEPRAZOLE MAGNESIUM
     Indication: FLATULENCE
     Dosage: 40 MG, 1X/DAY
     Route: 048
  6. ARTHROTEC [Suspect]
     Active Substance: DICLOFENAC SODIUM\MISOPROSTOL
     Indication: ARTHRITIS
     Dosage: UNK, 2X/DAY
     Dates: start: 201408, end: 201410

REACTIONS (1)
  - Gastrointestinal pain [Unknown]

NARRATIVE: CASE EVENT DATE: 201409
